FAERS Safety Report 9690091 (Version 1)
Quarter: 2013Q4

REPORT INFORMATION
  Report Type: Spontaneous
  Country: IT (occurrence: IT)
  Receive Date: 20131115
  Receipt Date: 20131115
  Transmission Date: 20140711
  Serious: Yes (Other)
  Sender: FDA-Public Use
  Company Number: IT-TEVA-443769ISR

PATIENT
  Age: 66 Year
  Sex: Female
  Weight: 70 kg

DRUGS (8)
  1. FLUOROURACILE TEVA [Suspect]
     Indication: COLON CANCER
     Dosage: 716 MILLIGRAM DAILY;
     Route: 040
     Dates: start: 20130514, end: 20130529
  2. FLUOROURACILE TEVA [Suspect]
     Dosage: 1074 MILLIGRAM DAILY;
     Route: 042
     Dates: start: 20130514, end: 20130529
  3. IRINOTECAN HOSPIRA [Suspect]
     Indication: COLON CANCER
     Dosage: 322.2 MILLIGRAM DAILY; CONCENTRATE FOR  SOLUTION FOR INTRAVENOUS INFUSION
     Route: 042
     Dates: start: 20130514, end: 20130529
  4. AVASTIN [Suspect]
     Indication: COLON CANCER
     Dosage: 350 MILLIGRAM DAILY; CONCENTRATE FOR SOLUTION FOR INTRAVENOUS INFUSION
     Route: 042
     Dates: start: 20130514, end: 20130529
  5. RANIDIL [Concomitant]
     Dosage: 50 MILLIGRAM DAILY;
     Route: 040
     Dates: start: 20130514, end: 20130529
  6. SOLDESAM [Concomitant]
     Dosage: 8 MILLIGRAM DAILY;
     Route: 040
     Dates: start: 20130514, end: 20130529
  7. ONDANSETRONE HIKMA [Concomitant]
     Indication: PROPHYLAXIS OF NAUSEA AND VOMITING
     Dosage: 8 MILLIGRAM DAILY;
     Route: 040
     Dates: start: 20130514, end: 20130529
  8. LEVOFOLENE [Concomitant]
     Dosage: 179 MILLIGRAM DAILY; POWDER AND SOLVENT FOR SOLUTION FOR INTRAVENOUS INFUSION
     Route: 042
     Dates: start: 20130514, end: 20130529

REACTIONS (8)
  - Nausea [Unknown]
  - Vomiting [Unknown]
  - Diarrhoea [Unknown]
  - Asthenia [Unknown]
  - Rash [Unknown]
  - Abdominal pain [Unknown]
  - Anorectal discomfort [Unknown]
  - Dysphonia [Unknown]
